FAERS Safety Report 24529458 (Version 1)
Quarter: 2024Q4

REPORT INFORMATION
  Report Type: Spontaneous
  Country: ES (occurrence: ES)
  Receive Date: 20241021
  Receipt Date: 20241021
  Transmission Date: 20250115
  Serious: Yes (Other)
  Sender: DR REDDYS
  Company Number: None

PATIENT
  Age: 53 Year
  Sex: Male
  Weight: 86 kg

DRUGS (6)
  1. IMATINIB [Suspect]
     Active Substance: IMATINIB
     Indication: Gastrointestinal carcinoma
  2. IMATINIB [Suspect]
     Active Substance: IMATINIB
     Dosage: 400MG/12H
     Route: 048
     Dates: start: 20181008, end: 20190311
  3. DOXYCYCLINE [Concomitant]
     Active Substance: DOXYCYCLINE
     Indication: Arthropod bite
  4. IBUPROFEN [Concomitant]
     Active Substance: IBUPROFEN
     Indication: Arthropod bite
  5. FENOFIBRATE [Concomitant]
     Active Substance: FENOFIBRATE
     Indication: Product used for unknown indication
  6. OMEPRAZOLE [Concomitant]
     Active Substance: OMEPRAZOLE
     Indication: Product used for unknown indication

REACTIONS (2)
  - Pyoderma gangrenosum [Recovering/Resolving]
  - Necrotising panniculitis [Recovering/Resolving]

NARRATIVE: CASE EVENT DATE: 20190219
